FAERS Safety Report 16783581 (Version 1)
Quarter: 2019Q3

REPORT INFORMATION
  Report Type: Spontaneous
  Country: US (occurrence: US)
  Receive Date: 20190907
  Receipt Date: 20190907
  Transmission Date: 20191005
  Serious: No
  Sender: FDA-Public Use
  Company Number: US-009507513-1909USA002154

PATIENT
  Age: 37 Year
  Sex: Female

DRUGS (7)
  1. MENOPUR [Concomitant]
     Active Substance: FOLLITROPIN\LUTEINIZING HORMONE
  2. AZITHROMYCIN ANHYDROUS. [Concomitant]
     Active Substance: AZITHROMYCIN ANHYDROUS
  3. ENDOMETRIN [Concomitant]
     Active Substance: PROGESTERONE
  4. LEUPROLIDE [Concomitant]
     Active Substance: LEUPROLIDE
  5. FOLLISTIM [Suspect]
     Active Substance: FOLLITROPIN
     Indication: INFERTILITY
     Dosage: 225-450 UNITS
     Route: 030
     Dates: start: 20190802
  6. ESTRADIOL. [Concomitant]
     Active Substance: ESTRADIOL
  7. GONADOTROPIN, CHORIONIC [Concomitant]
     Active Substance: CHORIOGONADOTROPIN ALFA
     Dosage: UNK

REACTIONS (1)
  - Injection site rash [Unknown]

NARRATIVE: CASE EVENT DATE: 20190904
